FAERS Safety Report 5930890-2 (Version None)
Quarter: 2008Q4

REPORT INFORMATION
  Report Type: 
  Country: None (occurrence: None)
  Receive Date: 20081021
  Receipt Date: 20081007
  Transmission Date: 20090506
  Serious: Yes (Hospitalization)
  Sender: FDA-Public Use
  Company Number: SPI200800490

PATIENT
  Sex: Male

DRUGS (1)
  1. AMITIZA [Suspect]
     Dosage: ORAL
     Route: 048

REACTIONS (1)
  - ILEUS [None]
